FAERS Safety Report 7960279-6 (Version None)
Quarter: 2011Q4

REPORT INFORMATION
  Report Type: 
  Country: None (occurrence: None)
  Receive Date: 20111206
  Receipt Date: 20111201
  Transmission Date: 20120403
  Serious: Yes (Disabling, Other)
  Sender: FDA-Public Use
  Company Number: US-TEVA-312195USA

PATIENT
  Sex: Female

DRUGS (3)
  1. IBANDRONATE SODIUM [Suspect]
     Dates: start: 20090301, end: 20100301
  2. ALENDRONATE SODIUM [Suspect]
     Dates: start: 20030401, end: 20090201
  3. ALENDRONIC ACID [Suspect]
     Dates: start: 20080801

REACTIONS (5)
  - TOXICITY TO VARIOUS AGENTS [None]
  - FEMUR FRACTURE [None]
  - BONE DISORDER [None]
  - STRESS FRACTURE [None]
  - LOW TURNOVER OSTEOPATHY [None]
